FAERS Safety Report 7602583-7 (Version None)
Quarter: 2011Q3

REPORT INFORMATION
  Report Type: 
  Country: None (occurrence: None)
  Receive Date: 20110712
  Receipt Date: 20110705
  Transmission Date: 20111222
  Serious: Yes (Death)
  Sender: FDA-Public Use
  Company Number: US-CELGENEUS-163-50794-11070737

PATIENT

DRUGS (4)
  1. VIDAZA [Suspect]
  2. VORINOSTAT [Suspect]
  3. VORINOSTAT [Suspect]
     Dosage: 200 MILLIGRAM
     Route: 048
  4. VIDAZA [Suspect]
     Dosage: 75 MILLIGRAM/SQ. METER
     Route: 051

REACTIONS (10)
  - OVARIAN CANCER METASTATIC [None]
  - NON-HODGKIN'S LYMPHOMA REFRACTORY [None]
  - NEOPLASM PROGRESSION [None]
  - NEOPLASM MALIGNANT [None]
  - MYELODYSPLASTIC SYNDROME [None]
  - ACUTE MYELOID LEUKAEMIA [None]
  - SARCOMA METASTATIC [None]
  - CHRONIC LYMPHOCYTIC LEUKAEMIA REFRACTORY [None]
  - BREAST CANCER METASTATIC [None]
  - PROSTATE CANCER [None]
